FAERS Safety Report 13665607 (Version 3)
Quarter: 2017Q4

REPORT INFORMATION
  Report Type: Spontaneous
  Country: IT (occurrence: IT)
  Receive Date: 20170619
  Receipt Date: 20171101
  Transmission Date: 20180320
  Serious: Yes (Other)
  Sender: FDA-Public Use
  Company Number: IT-NOVOPROD-549073

PATIENT
  Age: 91 Year
  Sex: Female

DRUGS (5)
  1. ACTRAPID [Suspect]
     Active Substance: INSULIN HUMAN
     Indication: DIABETES MELLITUS
     Dosage: UNK
     Route: 065
     Dates: end: 20170513
  2. HALDOL [Concomitant]
     Active Substance: HALOPERIDOL
     Dosage: 4 DROPS
  3. LASIX [Concomitant]
     Active Substance: FUROSEMIDE
     Dosage: 50.00 MG
  4. LANTUS [Suspect]
     Active Substance: INSULIN GLARGINE
     Indication: PRODUCT USED FOR UNKNOWN INDICATION
     Dosage: UNK
     Route: 065
  5. CALCIO CARBONATO CON VITAMINA D3 [Concomitant]
     Dosage: UNK

REACTIONS (2)
  - Hyperinsulinaemic hypoglycaemia [Recovering/Resolving]
  - Hypoglycaemic coma [Recovering/Resolving]

NARRATIVE: CASE EVENT DATE: 20170513
